FAERS Safety Report 5760513-7 (Version None)
Quarter: 2008Q2

REPORT INFORMATION
  Report Type: 
  Country: None (occurrence: None)
  Receive Date: 20080602
  Receipt Date: 20080519
  Transmission Date: 20081010
  Serious: Yes (Hospitalization)
  Sender: FDA-Public Use
  Company Number: MEDI-0006813

PATIENT
  Age: 4 Month
  Sex: Female
  Weight: 2.4 kg

DRUGS (1)
  1. SYNAGIS [Suspect]
     Indication: ANTIVIRAL PROPHYLAXIS
     Dosage: 50 MG, 1 IN 1 M, INTRAMUSCULAR
     Route: 030
     Dates: start: 20080407, end: 20080407

REACTIONS (8)
  - APNOEA [None]
  - BRADYCARDIA [None]
  - CYANOSIS [None]
  - DEPRESSED LEVEL OF CONSCIOUSNESS [None]
  - DYSPNOEA [None]
  - FATIGUE [None]
  - FEEDING DISORDER [None]
  - RHINORRHOEA [None]
